FAERS Safety Report 6108443-5 (Version None)
Quarter: 2009Q1

REPORT INFORMATION
  Report Type: 
  Country: None (occurrence: None)
  Receive Date: 20090309
  Receipt Date: 20090223
  Transmission Date: 20090719
  Serious: Yes (Hospitalization)
  Sender: FDA-Public Use
  Company Number: PL-PFIZER INC-2009174864

PATIENT

DRUGS (1)
  1. CLINDAMYCIN HCL [Suspect]
     Indication: TONSILLITIS

REACTIONS (1)
  - VANISHING BILE DUCT SYNDROME [None]
